FAERS Safety Report 5497835-3 (Version None)
Quarter: 2007Q4

REPORT INFORMATION
  Report Type: 
  Country: None (occurrence: None)
  Receive Date: 20071025
  Receipt Date: 20070328
  Transmission Date: 20080405
  Serious: No
  Sender: FDA-Public Use
  Company Number: A0642204A

PATIENT
  Sex: Male

DRUGS (7)
  1. ADVAIR DISKUS 100/50 [Suspect]
     Indication: ASTHMA
     Route: 055
     Dates: start: 20070206
  2. PREDNISONE [Concomitant]
  3. ALBUTEROL [Concomitant]
  4. ALLEGRA D 24 HOUR [Concomitant]
  5. NASONEX [Concomitant]
  6. PREVACID [Concomitant]
  7. SALINE NASAL WASHES [Concomitant]

REACTIONS (3)
  - APHONIA [None]
  - INCREASED APPETITE [None]
  - IRRITABILITY [None]
